FAERS Safety Report 9056352 (Version 1)
Quarter: 2013Q1

REPORT INFORMATION
  Report Type: Spontaneous
  Country: US (occurrence: US)
  Receive Date: 20130204
  Receipt Date: 20130204
  Transmission Date: 20140127
  Serious: Yes (Hospitalization)
  Sender: FDA-Public Use
  Company Number: US-ASTRAZENECA-2013SE05787

PATIENT
  Age: 57 Year
  Sex: Male
  Weight: 96.6 kg

DRUGS (4)
  1. SYMBICORT PMDI [Suspect]
     Indication: EMPHYSEMA
     Dosage: 160 TWO PUFFS TWO TIMES A DAY
     Route: 055
  2. SYMBICORT PMDI [Suspect]
     Indication: EMPHYSEMA
     Dosage: OVERDOSE
     Route: 055
  3. VENTOLIN [Concomitant]
     Indication: INHALATION THERAPY
     Dosage: PRN
     Route: 055
  4. IPRATOPIUM BROMIDE AND ALBUTEROL SULFATE [Concomitant]
     Indication: INHALATION THERAPY
     Dosage: 0.5/2.5 PRN
     Route: 055

REACTIONS (12)
  - Lung infection [Unknown]
  - Renal impairment [Unknown]
  - Overdose [Recovered/Resolved]
  - Photosensitivity reaction [Unknown]
  - Memory impairment [Unknown]
  - Nasopharyngitis [Unknown]
  - Sleep disorder due to general medical condition, insomnia type [Unknown]
  - Nocturia [Unknown]
  - Visual impairment [Unknown]
  - Impaired driving ability [Unknown]
  - Tremor [Unknown]
  - Dyspnoea [Unknown]
